FAERS Safety Report 25231785 (Version 4)
Quarter: 2025Q3

REPORT INFORMATION
  Report Type: Spontaneous
  Country: US (occurrence: US)
  Receive Date: 20250423
  Receipt Date: 20250810
  Transmission Date: 20251020
  Serious: No
  Sender: ALEXION PHARMACEUTICALS
  Company Number: US-AstraZeneca-CH-00852471AP

PATIENT
  Sex: Female

DRUGS (2)
  1. TEZSPIRE [Suspect]
     Active Substance: TEZEPELUMAB-EKKO
     Route: 065
     Dates: start: 20241004
  2. TEZSPIRE [Suspect]
     Active Substance: TEZEPELUMAB-EKKO

REACTIONS (6)
  - Injection site haemorrhage [Unknown]
  - Injection site discomfort [Unknown]
  - Incorrect dose administered [Unknown]
  - Erythema [Unknown]
  - Device leakage [Unknown]
  - Device use issue [Unknown]
